FAERS Safety Report 6258112-6 (Version None)
Quarter: 2009Q3

REPORT INFORMATION
  Report Type: 
  Country: None (occurrence: None)
  Receive Date: 20090707
  Receipt Date: 20090618
  Transmission Date: 20100115
  Serious: Yes (Death)
  Sender: FDA-Public Use
  Company Number: JP-ASTRAZENECA-2009SE02983

PATIENT
  Age: 81 Year
  Sex: Male
  Weight: 54 kg

DRUGS (6)
  1. BLOPRESS [Suspect]
     Indication: HYPERTENSION
     Route: 048
     Dates: start: 20070710
  2. TAKEPRON [Concomitant]
     Route: 048
     Dates: start: 20070710, end: 20070715
  3. INSULIN HUMAN [Concomitant]
     Indication: DIABETES MELLITUS
     Route: 042
     Dates: start: 20070709, end: 20070715
  4. MUCODYNE [Concomitant]
     Route: 048
     Dates: start: 20070713, end: 20070715
  5. VOLTAREN SUPPO [Concomitant]
     Route: 054
     Dates: start: 20070712, end: 20070715
  6. CALCIUM CHANNEL BLOCKERS [Concomitant]
     Indication: HYPERTENSION
     Route: 042
     Dates: start: 20070709, end: 20070711

REACTIONS (1)
  - EMBOLIC STROKE [None]
